FAERS Safety Report 21173041 (Version 1)
Quarter: 2022Q3

REPORT INFORMATION
  Report Type: Spontaneous
  Country: FR (occurrence: FR)
  Receive Date: 20220804
  Receipt Date: 20220804
  Transmission Date: 20221027
  Serious: Yes (Other)
  Sender: FDA-Public Use
  Company Number: None

PATIENT
  Age: 69 Year
  Sex: Female
  Weight: 42 kg

DRUGS (12)
  1. ONDANSETRON [Suspect]
     Active Substance: ONDANSETRON
     Indication: Small intestine neuroendocrine tumour
     Dates: start: 20211125, end: 20211125
  2. ARGININE [Suspect]
     Active Substance: ARGININE
     Indication: Small intestine neuroendocrine tumour
     Dosage: 25G/25G
     Dates: start: 20210928, end: 20210928
  3. LUTETIUM OXODOTREOTIDE LU-177 [Suspect]
     Active Substance: LUTETIUM OXODOTREOTIDE LU-177
     Indication: Small intestine neuroendocrine tumour
     Dosage: 370 MBQ/ML
     Dates: start: 20220126, end: 20220126
  4. INSULIN ASPART [Concomitant]
     Active Substance: INSULIN ASPART
  5. CREON [Concomitant]
     Active Substance: PANCRELIPASE AMYLASE\PANCRELIPASE LIPASE\PANCRELIPASE PROTEASE
  6. LANREOTIDE ACETATE [Concomitant]
     Active Substance: LANREOTIDE ACETATE
  7. LUTETIUM OXODOTREOTIDE LU-177 [Suspect]
     Active Substance: LUTETIUM OXODOTREOTIDE LU-177
     Indication: Small intestine neuroendocrine tumour
     Dosage: 370 MBQ/ML
     Dates: start: 20210928, end: 20210928
  8. LUTETIUM OXODOTREOTIDE LU-177 [Suspect]
     Active Substance: LUTETIUM OXODOTREOTIDE LU-177
     Indication: Small intestine neuroendocrine tumour
     Dosage: 370 MBQ/ML
     Dates: start: 20211125, end: 20211125
  9. ARGININE [Suspect]
     Active Substance: ARGININE
     Indication: Small intestine neuroendocrine tumour
     Dosage: 25G/25G
     Dates: start: 20220126, end: 20220126
  10. ARGININE [Suspect]
     Active Substance: ARGININE
     Indication: Small intestine neuroendocrine tumour
     Dosage: 25G/25G
     Dates: start: 20211125, end: 20211128
  11. ONDANSETRON [Suspect]
     Active Substance: ONDANSETRON
     Indication: Small intestine neuroendocrine tumour
     Dates: start: 20210928, end: 20210928
  12. ONDANSETRON [Suspect]
     Active Substance: ONDANSETRON
     Indication: Small intestine neuroendocrine tumour
     Dates: start: 20220126, end: 20220126

REACTIONS (1)
  - Thrombocytopenia [Not Recovered/Not Resolved]

NARRATIVE: CASE EVENT DATE: 20220126
